FAERS Safety Report 5736741-3 (Version None)
Quarter: 2008Q2

REPORT INFORMATION
  Report Type: 
  Country: None (occurrence: None)
  Receive Date: 20080513
  Receipt Date: 20080501
  Transmission Date: 20081010
  Serious: Yes (Life-Threatening, Hospitalization, Other)
  Sender: FDA-Public Use
  Company Number: CA-GENENTECH-250140

PATIENT
  Sex: Female
  Weight: 79 kg

DRUGS (7)
  1. OMALIZUMAB [Suspect]
     Indication: ASTHMA
     Dosage: 300 MG, UNK
     Route: 058
     Dates: start: 20061126
  2. OMALIZUMAB [Suspect]
     Dates: start: 20061222
  3. OMALIZUMAB [Suspect]
     Dates: start: 20070119
  4. FORMOTEROL [Concomitant]
     Indication: DRUG USE FOR UNKNOWN INDICATION
  5. QVAR 40 [Concomitant]
     Indication: DRUG USE FOR UNKNOWN INDICATION
  6. SINGULAIR [Concomitant]
     Indication: DRUG USE FOR UNKNOWN INDICATION
  7. SYMBICORT [Concomitant]
     Indication: DRUG USE FOR UNKNOWN INDICATION

REACTIONS (1)
  - COLON CANCER [None]
